FAERS Safety Report 7240880-8 (Version None)
Quarter: 2011Q1

REPORT INFORMATION
  Report Type: 
  Country: None (occurrence: None)
  Receive Date: 20110120
  Receipt Date: 20110120
  Transmission Date: 20110831
  Serious: Yes (Other)
  Sender: FDA-Public Use
  Company Number: None

PATIENT
  Age: 44 Year
  Sex: Male
  Weight: 94.8018 kg

DRUGS (3)
  1. LEXAPRO [Concomitant]
  2. LAMOTRIGINE [Suspect]
     Indication: BIPOLAR I DISORDER
     Dosage: 200MG DAILY PO STARTED TITRATION 11/09/2010 AND WAS ON 200 MG X 8 DAYS ON 12/24/10
     Route: 048
     Dates: start: 20101224
  3. LAMOTRIGINE [Suspect]
     Indication: BIPOLAR I DISORDER
     Dosage: 200MG DAILY PO STARTED TITRATION 11/09/2010 AND WAS ON 200 MG X 8 DAYS ON 12/24/10
     Route: 048
     Dates: start: 20101109

REACTIONS (7)
  - ARTHRALGIA [None]
  - PYREXIA [None]
  - STOMATITIS [None]
  - RASH [None]
  - HEADACHE [None]
  - VERTIGO [None]
  - DIZZINESS [None]
